FAERS Safety Report 23685370 (Version 1)
Quarter: 2024Q1

REPORT INFORMATION
  Report Type: Spontaneous
  Country: US (occurrence: US)
  Receive Date: 20240329
  Receipt Date: 20240329
  Transmission Date: 20240409
  Serious: Yes (Hospitalization, Other)
  Sender: FDA-Public Use
  Company Number: US-UNITED THERAPEUTICS-UNT-2023-032163

PATIENT
  Age: 42 Year
  Sex: Female

DRUGS (11)
  1. TYVASO [Suspect]
     Active Substance: TREPROSTINIL
     Indication: Pulmonary arterial hypertension
     Dosage: 54 ?G, QID
     Dates: start: 20230101
  2. TYVASO [Suspect]
     Active Substance: TREPROSTINIL
     Dosage: 36 ?G, QID (DECREASED DOSE)
     Dates: start: 202311
  3. TYVASO [Suspect]
     Active Substance: TREPROSTINIL
     Dosage: UNK, QID
     Dates: start: 202204
  4. TYVASO [Suspect]
     Active Substance: TREPROSTINIL
     Dosage: 48 ?G, QID
     Dates: start: 202212
  5. TYVASO [Suspect]
     Active Substance: TREPROSTINIL
     Dosage: UNK, QID
     Dates: start: 202307
  6. OFEV [Suspect]
     Active Substance: NINTEDANIB
     Indication: Pulmonary arterial hypertension
     Dosage: 150 MG, BID
     Route: 048
     Dates: start: 20221109
  7. OFEV [Suspect]
     Active Substance: NINTEDANIB
     Indication: Idiopathic pulmonary fibrosis
     Dosage: UNK
     Route: 048
  8. OFEV [Suspect]
     Active Substance: NINTEDANIB
     Indication: Systemic sclerosis pulmonary
     Dosage: UNK
     Route: 048
  9. OFEV [Suspect]
     Active Substance: NINTEDANIB
     Indication: Lung disorder
     Dosage: UNK
     Route: 048
  10. OFEV [Suspect]
     Active Substance: NINTEDANIB
     Indication: Hypoxia
     Dosage: UNK
     Route: 048
  11. OFEV [Suspect]
     Active Substance: NINTEDANIB
     Dosage: UNK
     Route: 048

REACTIONS (5)
  - Dyspnoea [Recovered/Resolved]
  - Pulmonary thrombosis [Recovered/Resolved]
  - Dizziness [Unknown]
  - Hypotension [Unknown]
  - Gastrointestinal disorder [Unknown]

NARRATIVE: CASE EVENT DATE: 20231108
